FAERS Safety Report 17349684 (Version 1)
Quarter: 2020Q1

REPORT INFORMATION
  Report Type: Spontaneous
  Country: US (occurrence: US)
  Receive Date: 20200130
  Receipt Date: 20200130
  Transmission Date: 20200409
  Serious: No
  Sender: FDA-Public Use
  Company Number: US-AUROBINDO-AUR-APL-2019-004565

PATIENT

DRUGS (1)
  1. DULOXETINE DELAYED-RELEASE CAPSULES USP 60 MG [Suspect]
     Active Substance: DULOXETINE HYDROCHLORIDE
     Indication: PRODUCT USED FOR UNKNOWN INDICATION
     Dosage: 60 MILLIGRAM
     Route: 065

REACTIONS (8)
  - Vertigo [Unknown]
  - Head discomfort [Unknown]
  - Nausea [Unknown]
  - Drug withdrawal syndrome [Unknown]
  - Product substitution issue [Unknown]
  - Dizziness [Unknown]
  - Impaired driving ability [Unknown]
  - Drug ineffective [Unknown]
